FAERS Safety Report 17454066 (Version 3)
Quarter: 2020Q3

REPORT INFORMATION
  Report Type: Spontaneous
  Country: US (occurrence: US)
  Receive Date: 20200224
  Receipt Date: 20200702
  Transmission Date: 20201102
  Serious: Yes (Other)
  Sender: FDA-Public Use
  Company Number: US-009507513-2002USA006429

PATIENT
  Age: 25 Year
  Sex: Female

DRUGS (1)
  1. NEXPLANON [Suspect]
     Active Substance: ETONOGESTREL
     Dosage: 1 IMPLANT
     Route: 059
     Dates: start: 20140715, end: 20200206

REACTIONS (8)
  - Complication of device removal [Recovered/Resolved]
  - Implant site scar [Unknown]
  - Implant site fibrosis [Unknown]
  - Complication associated with device [Recovered/Resolved]
  - Device dislocation [Unknown]
  - General anaesthesia [Unknown]
  - Surgery [Unknown]
  - Incorrect product administration duration [Unknown]

NARRATIVE: CASE EVENT DATE: 20170716
